FAERS Safety Report 23198974 (Version 1)
Quarter: 2023Q4

REPORT INFORMATION
  Report Type: Spontaneous
  Country: US (occurrence: US)
  Receive Date: 20231117
  Receipt Date: 20231117
  Transmission Date: 20240109
  Serious: No
  Sender: FDA-Public Use
  Company Number: US-Stemline Therapeutics, Inc.-2023ST003297

PATIENT
  Age: 72 Year
  Sex: Female

DRUGS (1)
  1. ORSERDU [Suspect]
     Active Substance: ELACESTRANT
     Indication: Product used for unknown indication
     Dosage: 172 MG (2 TABLETS OF 86 EACH) ONCE ORALLY BY MOUTH
     Route: 048
     Dates: start: 20230818

REACTIONS (2)
  - Alopecia [Unknown]
  - Nausea [Unknown]
